FAERS Safety Report 4817036-9 (Version None)
Quarter: 2005Q4

REPORT INFORMATION
  Report Type: 
  Country: None (occurrence: None)
  Receive Date: 20051101
  Receipt Date: 20051024
  Transmission Date: 20060501
  Serious: Yes (Life-Threatening, Hospitalization)
  Sender: FDA-Public Use
  Company Number: 2005-0235

PATIENT
  Age: 46 Year
  Sex: Female

DRUGS (9)
  1. RANIPLEX [Suspect]
     Dosage: 1UNIT TWICE PER DAY
     Route: 048
     Dates: end: 20050704
  2. DILTIAZEM HCL [Suspect]
     Indication: TACHYCARDIA
     Dosage: 1UNIT THREE TIMES PER DAY
     Route: 048
     Dates: end: 20050704
  3. COLCHICINE [Concomitant]
     Indication: GOUT
     Dosage: 1UNIT PER DAY
     Route: 048
  4. NEURONTIN [Concomitant]
     Indication: EPILEPSY
     Dosage: 2UNIT TWICE PER DAY
     Route: 048
  5. CORTANCYL [Concomitant]
     Dosage: 20MG PER DAY
     Route: 048
  6. KLIPAL [Concomitant]
     Indication: GENERAL SYMPTOM
     Dosage: 2UNIT THREE TIMES PER DAY
     Route: 048
  7. METHOTREXATE [Concomitant]
     Route: 048
     Dates: start: 20050630, end: 20050630
  8. SPECIAFOLDINE [Concomitant]
     Route: 065
     Dates: start: 20050702, end: 20050704
  9. REMICADE [Concomitant]
     Route: 048
     Dates: end: 20050601

REACTIONS (5)
  - DYSPNOEA [None]
  - ELECTROCARDIOGRAM QT PROLONGED [None]
  - LOSS OF CONSCIOUSNESS [None]
  - MALAISE [None]
  - TORSADE DE POINTES [None]
